FAERS Safety Report 18241194 (Version 1)
Quarter: 2020Q3

REPORT INFORMATION
  Report Type: Spontaneous
  Country: US (occurrence: US)
  Receive Date: 20200904
  Receipt Date: 20200904
  Transmission Date: 20201103
  Serious: No
  Sender: FDA-Public Use
  Company Number: None

PATIENT
  Age: 76 Year
  Sex: Male
  Weight: 68 kg

DRUGS (1)
  1. GLIMEPIRIDE (GLIMEPIRIDE 4MG TAB) [Suspect]
     Active Substance: GLIMEPIRIDE
     Indication: DIABETES MELLITUS
     Dosage: 2 MG AM PO
     Route: 048
     Dates: start: 20090924, end: 20200829

REACTIONS (3)
  - Hypoglycaemia [None]
  - Troponin increased [None]
  - Brain natriuretic peptide increased [None]

NARRATIVE: CASE EVENT DATE: 20200826
